FAERS Safety Report 8896302 (Version 1)
Quarter: 2012Q4

REPORT INFORMATION
  Report Type: 
  Country: US (occurrence: None)
  Receive Date: 20121106
  Receipt Date: 20121106
  Transmission Date: 20130627
  Serious: Yes (Hospitalization)
  Sender: FDA-Public Use
  Company Number: None

PATIENT
  Sex: Male
  Weight: 59.8 kg

DRUGS (1)
  1. ALFA 2 INTERFERON 2B (INTRON-A) [Suspect]
     Dosage: 48 million IU
     Dates: start: 20120919

REACTIONS (12)
  - Weight decreased [None]
  - Confusional state [None]
  - Activities of daily living impaired [None]
  - Asthenia [None]
  - Fall [None]
  - Aspartate aminotransferase abnormal [None]
  - Alanine aminotransferase abnormal [None]
  - Dizziness [None]
  - Tachycardia [None]
  - Dehydration [None]
  - Amnesia [None]
  - Decreased activity [None]
